FAERS Safety Report 25102271 (Version 1)
Quarter: 2025Q1

REPORT INFORMATION
  Report Type: Spontaneous
  Country: ZA (occurrence: ZA)
  Receive Date: 20250320
  Receipt Date: 20250320
  Transmission Date: 20250408
  Serious: Yes (Other)
  Sender: ORGANON
  Company Number: ZA-ORGANON-O2503ZAF001605

PATIENT
  Sex: Female

DRUGS (1)
  1. ETONOGESTREL [Suspect]
     Active Substance: ETONOGESTREL
     Route: 059

REACTIONS (6)
  - Pregnancy with implant contraceptive [Recovered/Resolved]
  - Unintended pregnancy [Recovered/Resolved]
  - Female sterilisation [Recovered/Resolved]
  - Complication associated with device [Not Recovered/Not Resolved]
  - Labelled drug-drug interaction issue [Unknown]
  - Product use issue [Unknown]
